FAERS Safety Report 17644288 (Version 3)
Quarter: 2022Q2

REPORT INFORMATION
  Report Type: Spontaneous
  Country: US (occurrence: US)
  Receive Date: 20200408
  Receipt Date: 20220511
  Transmission Date: 20220721
  Serious: No
  Sender: FDA-Public Use
  Company Number: US-PFIZER INC-2020141303

PATIENT
  Age: 69 Year
  Sex: Female

DRUGS (1)
  1. XELJANZ [Suspect]
     Active Substance: TOFACITINIB CITRATE
     Indication: Rheumatoid arthritis
     Dosage: 5 MG TWICE DAILY
     Route: 048
     Dates: start: 201911

REACTIONS (3)
  - Product dose omission issue [Unknown]
  - Abdominal rigidity [Unknown]
  - Neck pain [Unknown]

NARRATIVE: CASE EVENT DATE: 20200501
